FAERS Safety Report 6442209-1 (Version None)
Quarter: 2009Q4

REPORT INFORMATION
  Report Type: 
  Country: None (occurrence: None)
  Receive Date: 20091116
  Receipt Date: 20091106
  Transmission Date: 20100525
  Serious: Yes (Hospitalization, Other)
  Sender: FDA-Public Use
  Company Number: JP-ASTRAZENECA-2009SE22450

PATIENT
  Age: 22960 Day
  Sex: Male
  Weight: 56 kg

DRUGS (4)
  1. IRESSA [Suspect]
     Indication: LUNG NEOPLASM MALIGNANT
     Route: 048
     Dates: start: 20090804, end: 20090924
  2. METHYCOOL [Concomitant]
     Indication: NEUROPATHY PERIPHERAL
     Route: 048
     Dates: start: 20081108, end: 20090924
  3. MOBIC [Concomitant]
     Indication: ARTHRALGIA
     Route: 048
     Dates: start: 20081108, end: 20090924
  4. GOSHA-JINKI-GAN [Concomitant]
     Indication: SCIATICA
     Route: 048
     Dates: start: 20081108, end: 20090924

REACTIONS (2)
  - ABDOMINAL PAIN [None]
  - DIARRHOEA [None]
